FAERS Safety Report 13641404 (Version 1)
Quarter: 2017Q2

REPORT INFORMATION
  Report Type: Report from Study
  Country: CA (occurrence: CA)
  Receive Date: 20170612
  Receipt Date: 20170612
  Transmission Date: 20170830
  Serious: Yes (Other)
  Sender: FDA-Public Use
  Company Number: CA-AMGEN-CANSL2017086014

PATIENT
  Age: 75 Year
  Sex: Male
  Weight: 89.8 kg

DRUGS (2)
  1. NPLATE [Suspect]
     Active Substance: ROMIPLOSTIM
     Indication: IMMUNE THROMBOCYTOPENIC PURPURA
     Dosage: 250 MUG/0.5 ML, UNK
     Route: 065
     Dates: start: 20131126
  2. NPLATE [Suspect]
     Active Substance: ROMIPLOSTIM
     Dosage: 350 MUG, Q2WK
     Route: 058
     Dates: start: 20170602

REACTIONS (1)
  - Platelet count abnormal [Unknown]

NARRATIVE: CASE EVENT DATE: 20170601
